FAERS Safety Report 13326971 (Version 1)
Quarter: 2017Q1

REPORT INFORMATION
  Report Type: Report from Study
  Country: IT (occurrence: IT)
  Receive Date: 20170312
  Receipt Date: 20170312
  Transmission Date: 20170428
  Serious: Yes (Other)
  Sender: FDA-Public Use
  Company Number: IT-ROCHE-1901965

PATIENT
  Age: 60 Year
  Sex: Male
  Weight: 77 kg

DRUGS (5)
  1. FOLINIC ACID [Suspect]
     Active Substance: LEUCOVORIN
     Indication: RECTAL CANCER
     Dosage: DATE OF MOST RECENT DOSE: 17/AUG/2016, DOSE: 360 MG
     Route: 042
     Dates: start: 20160414
  2. OXALIPLATIN. [Suspect]
     Active Substance: OXALIPLATIN
     Indication: RECTAL CANCER
     Dosage: DATE OF MOST RECENT DOSE: 17/AUG/2016, DOSE: 153 MG
     Route: 042
     Dates: start: 20160404
  3. BEVACIZUMAB [Suspect]
     Active Substance: BEVACIZUMAB
     Indication: RECTAL CANCER
     Dosage: DATE OF MOST RECENT DOSE: 17/AUG/2016, 375 MG
     Route: 042
     Dates: start: 20160414, end: 20160901
  4. IRINOTECAN [Suspect]
     Active Substance: IRINOTECAN
     Indication: RECTAL CANCER
     Dosage: DATE OF MOST RECENT DOSE: 17/AUG/2016, DOSE: 297 MG
     Route: 042
     Dates: start: 20160404
  5. 5-FLUOROURACIL [Suspect]
     Active Substance: FLUOROURACIL
     Indication: RECTAL CANCER
     Dosage: DATE OF MOST RECENT DOSE: 17/AUG/2016, DOSE: 5000 MG
     Route: 042
     Dates: start: 20160404

REACTIONS (2)
  - Mesenteric artery thrombosis [Not Recovered/Not Resolved]
  - Angiopathy [Not Recovered/Not Resolved]

NARRATIVE: CASE EVENT DATE: 20160811
